FAERS Safety Report 18250893 (Version 1)
Quarter: 2020Q3

REPORT INFORMATION
  Report Type: Spontaneous
  Country: US (occurrence: US)
  Receive Date: 20200909
  Receipt Date: 20200909
  Transmission Date: 20201103
  Serious: Yes (Hospitalization)
  Sender: FDA-Public Use
  Company Number: US-COLLEGIUM PHARMACEUTICAL, INC.-US-2020COL000380

PATIENT
  Sex: Female

DRUGS (1)
  1. NUCYNTA ER [Suspect]
     Active Substance: TAPENTADOL HYDROCHLORIDE
     Indication: MULTIPLE SCLEROSIS
     Dosage: 200 MG, UNK

REACTIONS (3)
  - Seizure [Unknown]
  - Syncope [Unknown]
  - Product use in unapproved indication [Unknown]
